FAERS Safety Report 9642892 (Version 2)
Quarter: 2013Q4

REPORT INFORMATION
  Report Type: Report from Study
  Country: IN (occurrence: IN)
  Receive Date: 20131024
  Receipt Date: 20131024
  Transmission Date: 20140711
  Serious: Yes (Death)
  Sender: FDA-Public Use
  Company Number: PHHY2012IN039661

PATIENT
  Age: 53 Year
  Sex: Female

DRUGS (2)
  1. GLIVEC [Suspect]
     Indication: CHRONIC MYELOID LEUKAEMIA
     Dosage: 400 MG
     Route: 048
  2. GLIVEC [Suspect]
     Dosage: 800 MG
     Route: 048

REACTIONS (2)
  - Death [Fatal]
  - Therapeutic response decreased [Unknown]
